FAERS Safety Report 6347892-7 (Version None)
Quarter: 2009Q3

REPORT INFORMATION
  Report Type: 
  Country: None (occurrence: None)
  Receive Date: 20090910
  Receipt Date: 20090903
  Transmission Date: 20100115
  Serious: Yes (Other)
  Sender: FDA-Public Use
  Company Number: ES-WYE-G04360009

PATIENT
  Age: 59 Year
  Sex: Male
  Weight: 74 kg

DRUGS (2)
  1. TORISEL [Suspect]
     Indication: RENAL CANCER
     Dosage: UNKNOWN
     Dates: start: 20080701, end: 20090726
  2. TORISEL [Suspect]
     Dosage: 20 MG
     Dates: start: 20090727

REACTIONS (1)
  - HYPOTHYROIDISM [None]
